FAERS Safety Report 6423525-6 (Version None)
Quarter: 2009Q4

REPORT INFORMATION
  Report Type: 
  Country: None (occurrence: None)
  Receive Date: 20091102
  Receipt Date: 20081103
  Transmission Date: 20100525
  Serious: No
  Sender: FDA-Public Use
  Company Number: A0754817A

PATIENT
  Age: 60 Year
  Sex: Female

DRUGS (9)
  1. RYTHMOL SR [Suspect]
     Indication: ARRHYTHMIA
     Dosage: 225MG TWICE PER DAY
     Route: 048
     Dates: start: 20080601
  2. PREVACID [Concomitant]
  3. NAPROSYN [Concomitant]
  4. ASPIRIN [Concomitant]
  5. ZOLOFT [Concomitant]
  6. XANAX [Concomitant]
  7. SYNTHROID [Concomitant]
  8. PLAVIX [Concomitant]
  9. TOPROL-XL [Concomitant]

REACTIONS (2)
  - ARTHRALGIA [None]
  - MYALGIA [None]
